FAERS Safety Report 9417627 (Version 1)
Quarter: 2013Q3

REPORT INFORMATION
  Report Type: Spontaneous
  Country: JP (occurrence: None)
  Receive Date: 20130719
  Receipt Date: 20130719
  Transmission Date: 20140515
  Serious: Yes (Other)
  Sender: FDA-Public Use
  Company Number: SYM-2013-06684

PATIENT
  Sex: 0

DRUGS (3)
  1. FLUOROURACIL (FLUOROURACIL) (FLUOROURACIL) [Suspect]
     Indication: COLORECTAL CANCER
     Dosage: 600MG/M2
  2. FOLINIC ACID [Suspect]
     Indication: COLORECTAL CANCER
     Dosage: 200MG/M2
  3. BEVACIZUMAB [Suspect]
     Indication: COLORECTAL CANCER
     Dosage: 5MG/KG, EVERY OTHER WEEK

REACTIONS (2)
  - Pulmonary embolism [None]
  - Febrile neutropenia [None]
